FAERS Safety Report 7644670-3 (Version None)
Quarter: 2011Q3

REPORT INFORMATION
  Report Type: 
  Country: None (occurrence: None)
  Receive Date: 20110729
  Receipt Date: 20110720
  Transmission Date: 20111222
  Serious: Yes (Hospitalization, Other)
  Sender: FDA-Public Use
  Company Number: US-ASTRAZENECA-2011SE43399

PATIENT
  Age: 57 Year
  Sex: Female
  Weight: 98.4 kg

DRUGS (9)
  1. ALPRAZOLAM [Concomitant]
  2. OXYCODONE HCL [Concomitant]
  3. SYMBICORT [Suspect]
     Indication: ASTHMA
     Dosage: 160/4.5 1 PUFF TWO TIMES A DAY
     Route: 055
     Dates: start: 20070101
  4. NAPROXEN (ALEVE) [Concomitant]
  5. ATENOLOL [Concomitant]
     Route: 065
  6. PREDNISONE [Concomitant]
  7. CITALOPRAM HYDROBROMIDE [Concomitant]
  8. ZANTAC [Concomitant]
  9. LOSARTAN POTASSIUM [Concomitant]

REACTIONS (5)
  - RENAL DISORDER [None]
  - FOOT FRACTURE [None]
  - SYSTEMIC LUPUS ERYTHEMATOSUS [None]
  - SCARLET FEVER [None]
  - HYPERTENSION [None]
